FAERS Safety Report 8406131 (Version 3)
Quarter: 2013Q3

REPORT INFORMATION
  Report Type: Spontaneous
  Country: US (occurrence: US)
  Receive Date: 20120215
  Receipt Date: 20130725
  Transmission Date: 20140515
  Serious: No
  Sender: FDA-Public Use
  Company Number: US-PFIZER INC-2012036825

PATIENT
  Age: 57 Year
  Sex: Female
  Weight: 49 kg

DRUGS (13)
  1. LYRICA [Suspect]
     Indication: PAIN
     Dosage: 50 MG, 3X/DAY
     Route: 048
     Dates: start: 2010, end: 20120103
  2. LYRICA [Suspect]
     Indication: SCIATICA
     Dosage: 50 MG, 1X/DAY (QHS)
     Route: 048
     Dates: start: 20100319
  3. LYRICA [Suspect]
     Dosage: 50 MG, 2X/DAY (BID)
     Route: 048
     Dates: start: 20100420
  4. LYRICA [Suspect]
     Dosage: 50 MG, 3X/DAY (TID)
     Route: 048
     Dates: end: 201112
  5. IBUPROFEN [Concomitant]
     Indication: PAIN
     Dosage: UNK
  6. VITAMINS [Concomitant]
     Dosage: UNK
  7. CO-Q-10 [Concomitant]
     Dosage: 1 DF, 1X/DAY (1 CAPS/ D)
  8. FISH OIL [Concomitant]
     Dosage: 1 DF, 1X/DAY (1 CAPS/ D)
  9. CITRACAL [Concomitant]
     Dosage: 3 DF, 1X/DAY (3/DAY)
  10. FOSAMAX [Concomitant]
     Dosage: 70 MG, WEEKLY
  11. PRAVASTATIN [Concomitant]
     Dosage: 40 MG, 1X/DAY (QHS)
  12. DIAZEPAM [Concomitant]
     Dosage: 2 MG, 1X/DAY (QHS)
  13. ALLEGRA [Concomitant]
     Dosage: 180 MG, 1X/DAY

REACTIONS (5)
  - Dysgeusia [Not Recovered/Not Resolved]
  - Vitamin B12 decreased [Unknown]
  - Paraesthesia oral [Recovered/Resolved]
  - Muscle twitching [Recovered/Resolved]
  - Weight decreased [Unknown]
